FAERS Safety Report 10674598 (Version 1)
Quarter: 2014Q4

REPORT INFORMATION
  Report Type: Spontaneous
  Country: US (occurrence: US)
  Receive Date: 20141224
  Receipt Date: 20141224
  Transmission Date: 20150529
  Serious: Yes (Disabling, Other)
  Sender: FDA-Public Use
  Company Number: US-ACTAVIS-2014-27077

PATIENT
  Age: 64 Year
  Sex: Female

DRUGS (2)
  1. PACLITAXEL (ATLLC) [Suspect]
     Active Substance: PACLITAXEL
     Indication: OVARIAN CANCER STAGE III
     Dosage: UNK, CYCLICAL; 8 CYCLES
     Route: 065
  2. CARBOPLATIN. [Concomitant]
     Active Substance: CARBOPLATIN
     Indication: OVARIAN CANCER STAGE III
     Dosage: UNK, CYCLICAL; 8 CYCLES
     Route: 065

REACTIONS (2)
  - Gait disturbance [Recovered/Resolved]
  - Paraesthesia [Not Recovered/Not Resolved]
